FAERS Safety Report 7548833-7 (Version None)
Quarter: 2011Q2

REPORT INFORMATION
  Report Type: 
  Country: None (occurrence: None)
  Receive Date: 20110615
  Receipt Date: 20110607
  Transmission Date: 20111010
  Serious: Yes (Hospitalization)
  Sender: FDA-Public Use
  Company Number: BR-SANOFI-AVENTIS-2011SA036039

PATIENT
  Sex: Male

DRUGS (2)
  1. APIDRA [Suspect]
     Indication: DIABETES MELLITUS
  2. HUMULIN R [Concomitant]

REACTIONS (2)
  - TENDON DISORDER [None]
  - DRUG INEFFECTIVE [None]
